FAERS Safety Report 11760520 (Version 1)
Quarter: 2015Q4

REPORT INFORMATION
  Report Type: Spontaneous
  Country: US (occurrence: US)
  Receive Date: 20151120
  Receipt Date: 20151120
  Transmission Date: 20160304
  Serious: No
  Sender: FDA-Public Use
  Company Number: US-ELI_LILLY_AND_COMPANY-US201211006299

PATIENT
  Age: 75 Year
  Sex: Female

DRUGS (3)
  1. FORTEO [Suspect]
     Active Substance: TERIPARATIDE
     Dosage: UNK, QD
     Dates: start: 20120717, end: 201209
  2. FORTEO [Suspect]
     Active Substance: TERIPARATIDE
     Dosage: UNK, QD
     Dates: start: 20121116
  3. FORTEO [Suspect]
     Active Substance: TERIPARATIDE
     Dosage: UNK, QD

REACTIONS (2)
  - Abdominal discomfort [Unknown]
  - Blood calcium increased [Unknown]

NARRATIVE: CASE EVENT DATE: 201209
